FAERS Safety Report 16452417 (Version 1)
Quarter: 2019Q2

REPORT INFORMATION
  Report Type: Spontaneous
  Country: HR (occurrence: HR)
  Receive Date: 20190619
  Receipt Date: 20190619
  Transmission Date: 20190711
  Serious: Yes (Other)
  Sender: FDA-Public Use
  Company Number: HR-PFIZER INC-2019255230

PATIENT
  Age: 16 Year
  Sex: Male

DRUGS (10)
  1. SANVAL [Suspect]
     Active Substance: ZOLPIDEM TARTRATE
     Dosage: 1 (UNIT OF MEASURE NOT REPORTED), UNK
     Route: 048
     Dates: start: 20190220, end: 20190220
  2. SUBUTEX [Suspect]
     Active Substance: BUPRENORPHINE HYDROCHLORIDE
     Dosage: 1 (UNIT OF MEASURE NOT REPORTED), UNK
     Route: 048
     Dates: start: 20190220, end: 20190220
  3. NORMABEL [Suspect]
     Active Substance: DIAZEPAM
     Dosage: 1 (UNIT OF MEASURE NOT REPORTED), UNK
     Route: 048
     Dates: start: 20190220, end: 20190220
  4. XANAX [Suspect]
     Active Substance: ALPRAZOLAM
     Dosage: 1 (UNIT OF MEASURE NOT REPORTED), UNK
     Route: 048
     Dates: start: 20190220, end: 20190220
  5. COCAINE [Suspect]
     Active Substance: COCAINE
     Dosage: UNK
     Dates: start: 20190220, end: 20190220
  6. SERPENTIL [ESCITALOPRAM OXALATE] [Suspect]
     Active Substance: ESCITALOPRAM OXALATE
     Dosage: 1 (UNIT OF MEASURE NOT REPORTED), UNK
     Route: 048
     Dates: start: 20190220, end: 20190220
  7. MARIJUANA [Suspect]
     Active Substance: CANNABIS SATIVA SUBSP. INDICA TOP
     Dosage: UNK
     Dates: start: 20190220, end: 20190220
  8. MISAR [ALPRAZOLAM] [Suspect]
     Active Substance: ALPRAZOLAM
     Dosage: 1 (UNIT OF MEASURE NOT REPORTED), UNK
     Route: 048
     Dates: start: 20190220, end: 20190220
  9. PREGABALIN. [Suspect]
     Active Substance: PREGABALIN
     Dosage: 1 (UNIT OF MEASURE NOT REPORTED), UNK
     Route: 048
     Dates: start: 20190220, end: 20190220
  10. KVENTIAX [Suspect]
     Active Substance: QUETIAPINE FUMARATE
     Dosage: 1 (UNIT OF MEASURE NOT REPORTED), UNK
     Route: 048
     Dates: start: 20190220, end: 20190220

REACTIONS (4)
  - Drug abuse [Unknown]
  - Blood potassium increased [Unknown]
  - Agitation [Unknown]
  - Bradycardia [Unknown]

NARRATIVE: CASE EVENT DATE: 201902
